FAERS Safety Report 8484165-0 (Version None)
Quarter: 2012Q2

REPORT INFORMATION
  Report Type: 
  Country: None (occurrence: None)
  Receive Date: 20120625
  Receipt Date: 20120611
  Transmission Date: 20120825
  Serious: Yes (Hospitalization)
  Sender: FDA-Public Use
  Company Number: JPI-P-021899

PATIENT
  Age: 86 Year
  Sex: Female

DRUGS (7)
  1. METOPROLOL SUCCINATE [Suspect]
     Indication: PRODUCT USED FOR UNKNOWN INDICATION
  2. THYROID TAB [Concomitant]
  3. ACETYLSALICYLIC ACID SRT [Concomitant]
  4. OMEPRAZOLE [Concomitant]
  5. XYREM [Suspect]
     Indication: INSOMNIA
     Dosage: 6 GM (3 GM, 2 IN 1 D),ORAL, 7.5 GM (3.75 GM,2 IN 1 D),ORAL, (8 GM,2.5 GM/2.5 GM/3 GM),ORAL
     Route: 048
     Dates: start: 20080212
  6. XYREM [Suspect]
     Indication: INSOMNIA
     Dosage: 6 GM (3 GM, 2 IN 1 D),ORAL, 7.5 GM (3.75 GM,2 IN 1 D),ORAL, (8 GM,2.5 GM/2.5 GM/3 GM),ORAL
     Route: 048
     Dates: start: 20120320
  7. RAMIPRIL [Concomitant]

REACTIONS (20)
  - HYPERSENSITIVITY [None]
  - MIDDLE INSOMNIA [None]
  - BLOOD POTASSIUM DECREASED [None]
  - WEIGHT DECREASED [None]
  - SINUS HEADACHE [None]
  - POLLAKIURIA [None]
  - UROSEPSIS [None]
  - SWELLING FACE [None]
  - HEART RATE DECREASED [None]
  - VIRAL INFECTION [None]
  - ENURESIS [None]
  - HERNIA [None]
  - DRUG INEFFECTIVE FOR UNAPPROVED INDICATION [None]
  - BURSITIS [None]
  - INCORRECT DOSE ADMINISTERED [None]
  - DEEP VEIN THROMBOSIS [None]
  - CYSTITIS [None]
  - URINE OUTPUT INCREASED [None]
  - OEDEMA PERIPHERAL [None]
  - THERAPEUTIC RESPONSE DECREASED [None]
